FAERS Safety Report 8327686 (Version 4)
Quarter: 2013Q1

REPORT INFORMATION
  Report Type: Report from Study
  Country: IT (occurrence: IT)
  Receive Date: 20120109
  Receipt Date: 20130326
  Transmission Date: 20140127
  Serious: Yes (Death, Life-Threatening, Hospitalization)
  Sender: FDA-Public Use
  Company Number: IT-CELGENEUS-083-21880-11123639

PATIENT
  Age: 67 Year
  Sex: Female

DRUGS (1)
  1. REVLIMID [Suspect]
     Indication: MYELODYSPLASTIC SYNDROME
     Route: 048
     Dates: start: 20110629, end: 20110906

REACTIONS (2)
  - Neutropenia [Fatal]
  - Thrombocytopenia [Fatal]
